FAERS Safety Report 21700446 (Version 1)
Quarter: 2022Q4

REPORT INFORMATION
  Report Type: Spontaneous
  Country: US (occurrence: US)
  Receive Date: 20221208
  Receipt Date: 20221208
  Transmission Date: 20230113
  Serious: No
  Sender: FDA-Public Use
  Company Number: US-SANOFI-01393872

PATIENT
  Age: 74 Year
  Sex: Female

DRUGS (2)
  1. SOLIQUA 100/33 [Suspect]
     Active Substance: INSULIN GLARGINE\LIXISENATIDE
     Indication: Type 1 diabetes mellitus
     Dosage: UNK
  2. METFORMIN [Concomitant]
     Active Substance: METFORMIN HYDROCHLORIDE

REACTIONS (1)
  - Weight increased [Unknown]
